FAERS Safety Report 7746286-7 (Version None)
Quarter: 2011Q3

REPORT INFORMATION
  Report Type: 
  Country: None (occurrence: None)
  Receive Date: 20110913
  Receipt Date: 20110906
  Transmission Date: 20111222
  Serious: Yes (Other)
  Sender: FDA-Public Use
  Company Number: FR-ROCHE-795912

PATIENT
  Age: 45 Year
  Sex: Male

DRUGS (1)
  1. BEVACIZUMAB [Suspect]
     Indication: RADIATION NECROSIS
     Dosage: FORM: INFUSION
     Route: 065
     Dates: start: 20091126

REACTIONS (5)
  - DIARRHOEA [None]
  - HOT FLUSH [None]
  - CONSTIPATION [None]
  - LYMPHOPENIA [None]
  - MUSCLE SPASMS [None]
